FAERS Safety Report 15232040 (Version 4)
Quarter: 2018Q3

REPORT INFORMATION
  Report Type: Report from Study
  Country: RU (occurrence: RU)
  Receive Date: 20180802
  Receipt Date: 20180928
  Transmission Date: 20181010
  Serious: Yes (Hospitalization, Other)
  Sender: FDA-Public Use
  Company Number: RU-ASTRAZENECA-2018SE95362

PATIENT
  Age: 20540 Day
  Sex: Male

DRUGS (17)
  1. MEDI4736 [Suspect]
     Active Substance: DURVALUMAB
     Indication: NON-SMALL CELL LUNG CANCER
     Dosage: 50 MH/ML
     Route: 042
     Dates: start: 20180626, end: 20180626
  2. PACLITAXEL. [Suspect]
     Active Substance: PACLITAXEL
     Indication: NON-SMALL CELL LUNG CANCER
     Dosage: 40 MG/M2
     Route: 065
     Dates: start: 20180717, end: 20180717
  3. CARBOPLATIN. [Suspect]
     Active Substance: CARBOPLATIN
     Indication: NON-SMALL CELL LUNG CANCER
     Dosage: 2.0 AUC
     Route: 065
     Dates: start: 20180702, end: 20180702
  4. PACLITAXEL. [Suspect]
     Active Substance: PACLITAXEL
     Indication: NON-SMALL CELL LUNG CANCER
     Dosage: 40MG/M2
     Route: 065
     Dates: start: 20180710, end: 20180710
  5. RINGERS SOLUTION [Concomitant]
     Active Substance: CALCIUM CHLORIDE\POTASSIUM CHLORIDE\SODIUM CHLORIDE
     Indication: PROPHYLAXIS
     Route: 042
     Dates: start: 20180718
  6. CARBOPLATIN. [Suspect]
     Active Substance: CARBOPLATIN
     Indication: NON-SMALL CELL LUNG CANCER
     Dosage: 2.0 AUC
     Route: 065
     Dates: start: 20180626, end: 20180626
  7. CARBOPLATIN. [Suspect]
     Active Substance: CARBOPLATIN
     Indication: NON-SMALL CELL LUNG CANCER
     Dosage: 2.0 AUC
     Route: 065
     Dates: start: 20180717, end: 20180717
  8. INSULIN [Concomitant]
     Active Substance: INSULIN NOS
     Indication: HYPERGLYCAEMIA
     Dosage: 4.0IU ONCE/SINGLE ADMINISTRATION
     Route: 058
     Dates: start: 20180724, end: 20180724
  9. PACLITAXEL. [Suspect]
     Active Substance: PACLITAXEL
     Indication: NON-SMALL CELL LUNG CANCER
     Dosage: 100 MG/M2
     Route: 065
     Dates: start: 20180626, end: 20180626
  10. PACLITAXEL. [Suspect]
     Active Substance: PACLITAXEL
     Indication: NON-SMALL CELL LUNG CANCER
     Dosage: 40MG/M2
     Route: 065
     Dates: start: 20180702
  11. ALMAGEL [Concomitant]
     Indication: DYSPEPSIA
     Route: 048
     Dates: start: 20180709
  12. FERRUM LEC [Concomitant]
     Indication: ANAEMIA
     Route: 048
     Dates: start: 20180716, end: 20180720
  13. VITAMIN C 5 % [Concomitant]
     Indication: SUPPORTIVE CARE
     Route: 042
     Dates: start: 20180717
  14. CARBOPLATIN. [Suspect]
     Active Substance: CARBOPLATIN
     Indication: NON-SMALL CELL LUNG CANCER
     Dosage: 2.0 AUC
     Route: 065
     Dates: start: 20180710, end: 20180710
  15. NEXIUM [Concomitant]
     Active Substance: ESOMEPRAZOLE MAGNESIUM
     Indication: DYSPEPSIA
     Route: 048
     Dates: start: 20180709
  16. PANANGIN [Concomitant]
     Active Substance: MAGNESIUM ASPARTATE\POTASSIUM ASPARTATE
     Indication: PROPHYLAXIS
     Route: 042
     Dates: start: 20180718
  17. RADIOTHERAPY [Suspect]
     Active Substance: RADIATION THERAPY
     Indication: NON-SMALL CELL LUNG CANCER
     Route: 065

REACTIONS (1)
  - Diabetes mellitus [Not Recovered/Not Resolved]

NARRATIVE: CASE EVENT DATE: 20180725
